FAERS Safety Report 6531936-3 (Version None)
Quarter: 2010Q1

REPORT INFORMATION
  Report Type: 
  Country: None (occurrence: None)
  Receive Date: 20100107
  Receipt Date: 20100107
  Transmission Date: 20100710
  Serious: No
  Sender: FDA-Public Use
  Company Number: None

PATIENT
  Sex: Female

DRUGS (1)
  1. BOTOX [Suspect]
     Indication: SKIN COSMETIC PROCEDURE
     Dosage: 12.5 UNITS ONCE IM ONE TIME USE
     Route: 030
     Dates: start: 20091111, end: 20091111

REACTIONS (1)
  - EYELID PTOSIS [None]
